FAERS Safety Report 25483973 (Version 1)
Quarter: 2025Q2

REPORT INFORMATION
  Report Type: Spontaneous
  Country: US (occurrence: None)
  Receive Date: 20250626
  Receipt Date: 20250626
  Transmission Date: 20250717
  Serious: No
  Sender: FDA-CTU
  Company Number: None

PATIENT

DRUGS (1)
  1. HUMIRA [Suspect]
     Active Substance: ADALIMUMAB

REACTIONS (8)
  - Rhabdomyolysis [None]
  - Large intestine perforation [None]
  - Back pain [None]
  - Neuropathy peripheral [None]
  - Rheumatoid arthritis [None]
  - Chronic obstructive pulmonary disease [None]
  - Interstitial lung disease [None]
  - Neuropathic arthropathy [None]
